FAERS Safety Report 9191013 (Version 2)
Quarter: 2014Q4

REPORT INFORMATION
  Report Type: Report from Study
  Country: JP (occurrence: JP)
  Receive Date: 20130326
  Receipt Date: 20141105
  Transmission Date: 20150529
  Serious: Yes (Hospitalization)
  Sender: FDA-Public Use
  Company Number: JP-ROCHE-1041214

PATIENT
  Age: 56 Year
  Sex: Male
  Weight: 62.1 kg

DRUGS (21)
  1. FUNGIZONE [Concomitant]
     Active Substance: AMPHOTERICIN B
     Route: 065
     Dates: start: 20120302
  2. AZUNOL [Concomitant]
     Active Substance: SODIUM GUALENATE
     Route: 065
     Dates: start: 20120127, end: 20120215
  3. CYCLOSPORINE. [Concomitant]
     Active Substance: CYCLOSPORINE
     Route: 065
     Dates: end: 20120328
  4. TAKEPRON OD [Concomitant]
     Active Substance: LANSOPRAZOLE
     Indication: GASTRITIS PROPHYLAXIS
     Route: 065
     Dates: start: 20120219, end: 20120225
  5. OMEPRAL [Concomitant]
     Active Substance: OMEPRAZOLE
     Indication: GASTRITIS PROPHYLAXIS
     Route: 065
     Dates: start: 20120226
  6. LENDORMIN [Concomitant]
     Active Substance: BROTIZOLAM
     Indication: INSOMNIA
     Route: 065
     Dates: start: 20120224, end: 20120224
  7. INTRALIPOS [Concomitant]
     Active Substance: SOYBEAN OIL
     Indication: NUTRITIONAL SUPPLEMENTATION
     Route: 065
     Dates: start: 20120304
  8. TRASTUZUMAB EMTANSINE [Suspect]
     Active Substance: ADO-TRASTUZUMAB EMTANSINE
     Indication: HER-2 POSITIVE BREAST CANCER
     Route: 042
     Dates: start: 20110922, end: 20120126
  9. MEVALOTIN [Concomitant]
     Active Substance: PRAVASTATIN SODIUM
     Indication: HYPERCHOLESTEROLAEMIA
     Route: 065
     Dates: start: 20110923, end: 20120215
  10. PRODIF [Concomitant]
     Active Substance: FOSFLUCONAZOLE
     Indication: INFECTION PROPHYLAXIS
     Route: 065
     Dates: start: 20120301, end: 20120301
  11. CRAVIT [Concomitant]
     Active Substance: LEVOFLOXACIN
     Indication: EYE DISCHARGE
     Route: 065
     Dates: start: 20111213, end: 20120216
  12. HEPARIN LOCK FLUSH SOLUTION [Concomitant]
     Route: 065
     Dates: start: 20120301, end: 20120305
  13. BERBERINE [Concomitant]
     Active Substance: BERBERINE
     Indication: EYE DISCHARGE
     Route: 065
     Dates: start: 20111108, end: 20120216
  14. LOXONIN [Concomitant]
     Active Substance: LOXOPROFEN SODIUM
     Indication: CANCER PAIN
     Route: 065
     Dates: start: 20110923, end: 20120215
  15. RHYTHMY [Concomitant]
     Active Substance: RILMAZAFONE HYDROCHLORIDE
     Indication: INSOMNIA
     Route: 065
     Dates: start: 20111006, end: 20120223
  16. METHYCOBAL [Concomitant]
     Active Substance: METHYLCOBALAMIN
     Indication: NEUROPATHY PERIPHERAL
     Route: 065
     Dates: start: 20120105, end: 20120215
  17. ATARAX-P [Concomitant]
     Active Substance: HYDROXYZINE HYDROCHLORIDE
     Indication: INSOMNIA
     Route: 065
     Dates: start: 20120225
  18. PANTOSIN [Concomitant]
     Active Substance: PANTETHINE
     Indication: CONSTIPATION PROPHYLAXIS
     Route: 065
     Dates: start: 20120229
  19. AZUNOL [Concomitant]
     Active Substance: SODIUM GUALENATE
     Indication: STOMATITIS
     Route: 065
     Dates: start: 20111213, end: 20120126
  20. PLACEBO [Suspect]
     Active Substance: UNSPECIFIED INGREDIENT
     Indication: HER-2 POSITIVE BREAST CANCER
     Route: 042
     Dates: start: 20110922, end: 20120126
  21. MUCOSTA [Concomitant]
     Active Substance: REBAMIPIDE
     Indication: GASTRITIS PROPHYLAXIS
     Route: 065
     Dates: start: 20110923, end: 20120215

REACTIONS (1)
  - Interstitial lung disease [Not Recovered/Not Resolved]

NARRATIVE: CASE EVENT DATE: 20120216
